FAERS Safety Report 5690158-9 (Version None)
Quarter: 2008Q2

REPORT INFORMATION
  Report Type: 
  Country: None (occurrence: None)
  Receive Date: 20080401
  Receipt Date: 20080328
  Transmission Date: 20081010
  Serious: Yes (Death)
  Sender: FDA-Public Use
  Company Number: PHHY2008JP03014

PATIENT
  Age: 82 Year
  Sex: Female

DRUGS (4)
  1. GLEEVEC [Suspect]
     Indication: CHRONIC MYELOID LEUKAEMIA
     Dosage: 300 MG, QD
     Route: 048
     Dates: start: 20030708
  2. AMARYL [Concomitant]
     Route: 048
  3. CHOREITOU [Concomitant]
     Route: 048
  4. MECOBALAMIN [Concomitant]
     Dosage: 1500 UG, UNK
     Route: 048

REACTIONS (3)
  - CARDIAC FAILURE [None]
  - CHEST PAIN [None]
  - MYOCARDIAL INFARCTION [None]
